FAERS Safety Report 18881469 (Version 1)
Quarter: 2021Q1

REPORT INFORMATION
  Report Type: Spontaneous
  Country: US (occurrence: US)
  Receive Date: 20210211
  Receipt Date: 20210211
  Transmission Date: 20210420
  Serious: No
  Sender: FDA-Public Use
  Company Number: US-ASTRAZENECA-2021A019074

PATIENT
  Sex: Female
  Weight: 70.8 kg

DRUGS (1)
  1. BYDUREON BCISE [Suspect]
     Active Substance: EXENATIDE
     Indication: INSULIN RESISTANT DIABETES
     Route: 058
     Dates: start: 2020

REACTIONS (5)
  - Weight increased [Unknown]
  - Thyroid disorder [Unknown]
  - Musculoskeletal discomfort [Unknown]
  - Device issue [Unknown]
  - Intentional product misuse [Unknown]
